FAERS Safety Report 6833955-6 (Version None)
Quarter: 2010Q3

REPORT INFORMATION
  Report Type: 
  Country: None (occurrence: None)
  Receive Date: 20100712
  Receipt Date: 20070406
  Transmission Date: 20110219
  Serious: No
  Sender: FDA-Public Use
  Company Number: US-PFIZER INC-2007028870

PATIENT
  Sex: Female

DRUGS (8)
  1. CHANTIX [Suspect]
     Dates: start: 20070320
  2. VITAMIN E [Concomitant]
  3. GENERAL NUTRIENTS [Concomitant]
  4. PREDNISONE [Concomitant]
  5. VYTORIN [Concomitant]
  6. ACETYLSALICYLIC ACID [Concomitant]
  7. VICODIN [Concomitant]
     Indication: PAIN
  8. QUININE SULFATE [Concomitant]

REACTIONS (1)
  - NAUSEA [None]
